FAERS Safety Report 6772811-9 (Version None)
Quarter: 2010Q2

REPORT INFORMATION
  Report Type: 
  Country: None (occurrence: None)
  Receive Date: 20100616
  Receipt Date: 20100607
  Transmission Date: 20101027
  Serious: Yes (Hospitalization, Other)
  Sender: FDA-Public Use
  Company Number: CH-BRISTOL-MYERS SQUIBB COMPANY-15137250

PATIENT
  Age: 32 Year
  Sex: Male

DRUGS (3)
  1. ABILIFY [Suspect]
     Indication: SCHIZOPHRENIA, DISORGANISED TYPE
     Dosage: REDUCED FROM 40 TO 20MG/DAY
  2. MIDAZOLAM [Suspect]
  3. CLOZAPINE [Suspect]

REACTIONS (5)
  - AGITATION [None]
  - DRUG ABUSE [None]
  - HALLUCINATION, VISUAL [None]
  - MEMORY IMPAIRMENT [None]
  - SEXUALLY INAPPROPRIATE BEHAVIOUR [None]
